FAERS Safety Report 4899767-8 (Version None)
Quarter: 2006Q1

REPORT INFORMATION
  Report Type: 
  Country: None (occurrence: None)
  Receive Date: 20060118
  Receipt Date: 20050516
  Transmission Date: 20060701
  Serious: No
  Sender: FDA-Public Use
  Company Number: 2005000932

PATIENT
  Sex: Male
  Weight: 106.5953 kg

DRUGS (5)
  1. TARCEVA [Suspect]
     Indication: NON-SMALL CELL LUNG CANCER
     Dosage: 150 MG (QD), ORAL
     Route: 048
     Dates: start: 20050506
  2. LIPITOR [Concomitant]
  3. ALLOPURINOL [Concomitant]
  4. METAGLIP (GLIPIZIDE/METFORMIN) [Concomitant]
  5. LISINOPRIL [Concomitant]

REACTIONS (1)
  - ORAL PAIN [None]
